FAERS Safety Report 23947973 (Version 2)
Quarter: 2024Q2

REPORT INFORMATION
  Report Type: Other
  Country: US (occurrence: None)
  Receive Date: 20240607
  Receipt Date: 20240612
  Transmission Date: 20240716
  Serious: Yes (Hospitalization)
  Sender: FDA-Public Use
  Company Number: US-ROCHE-3505431

PATIENT
  Age: 55 Year
  Sex: Male

DRUGS (12)
  1. OCREVUS [Suspect]
     Active Substance: OCRELIZUMAB
     Indication: Relapsing-remitting multiple sclerosis
     Dosage: MOST RECENT DOSE OF OCRELIZUMAB WAS RECEIVED ON 09/FEB/2023
     Route: 042
     Dates: start: 2018
  2. OCREVUS [Suspect]
     Active Substance: OCRELIZUMAB
     Indication: Secondary progressive multiple sclerosis
  3. BACLOFEN [Concomitant]
     Active Substance: BACLOFEN
  4. ALIGN [Concomitant]
     Active Substance: BIFIDOBACTERIUM LONGUM SUBSP. INFANTIS
  5. VITAMIN D3 [Concomitant]
     Active Substance: CHOLECALCIFEROL
  6. COLACE [Concomitant]
     Active Substance: DOCUSATE SODIUM
  7. LEXAPRO [Concomitant]
     Active Substance: ESCITALOPRAM OXALATE
  8. NALTREXONE [Concomitant]
     Active Substance: NALTREXONE
  9. OMEGA-3 FATTY ACIDS [Concomitant]
     Active Substance: OMEGA-3 FATTY ACIDS
  10. OXYBUTYNIN CHLORIDE [Concomitant]
     Active Substance: OXYBUTYNIN CHLORIDE
  11. TAMSULOSIN [Concomitant]
     Active Substance: TAMSULOSIN
  12. PSYLLIUM [Concomitant]
     Active Substance: PLANTAGO SEED

REACTIONS (2)
  - Urinary tract infection [Recovered/Resolved]
  - Neurogenic bladder [Unknown]

NARRATIVE: CASE EVENT DATE: 20231201
